FAERS Safety Report 24301619 (Version 1)
Quarter: 2024Q3

REPORT INFORMATION
  Report Type: Report from Study
  Country: CN (occurrence: CN)
  Receive Date: 20240910
  Receipt Date: 20240910
  Transmission Date: 20241016
  Serious: Yes (Other)
  Sender: JOHNSON AND JOHNSON
  Company Number: CN-JNJFOC-20240919685

PATIENT
  Age: 63 Year
  Sex: Male

DRUGS (3)
  1. REMICADE [Suspect]
     Active Substance: INFLIXIMAB
     Indication: Toxic epidermal necrolysis
     Route: 041
  2. IMMUNE GLOBULIN NOS [Suspect]
     Active Substance: IMMUNE GLOBULIN NOS
     Indication: Toxic epidermal necrolysis
     Route: 042
  3. SINTILIMAB [Concomitant]
     Active Substance: SINTILIMAB

REACTIONS (2)
  - Sepsis [Recovered/Resolved]
  - Off label use [Unknown]
